FAERS Safety Report 25388008 (Version 1)
Quarter: 2025Q2

REPORT INFORMATION
  Report Type: Report from Study
  Country: GB (occurrence: GB)
  Receive Date: 20250603
  Receipt Date: 20250603
  Transmission Date: 20250716
  Serious: Yes (Hospitalization, Other)
  Sender: CELLTRION
  Company Number: GB-CELLTRION INC.-2025GB016818

PATIENT

DRUGS (1)
  1. ADALIMUMAB-AATY [Suspect]
     Active Substance: ADALIMUMAB-AATY
     Indication: Crohn^s disease
     Dosage: YUFLYMA 40MG FOR INJECTION PENS - INJECT ONE PRE-FILLED PEN ONCE EVERY WEEK
     Route: 058
     Dates: start: 202406

REACTIONS (2)
  - Surgery [Unknown]
  - Intentional dose omission [Unknown]
